FAERS Safety Report 5513594-X (Version None)
Quarter: 2007Q4

REPORT INFORMATION
  Report Type: 
  Country: None (occurrence: None)
  Receive Date: 20071112
  Receipt Date: 20071109
  Transmission Date: 20080405
  Serious: No
  Sender: FDA-Public Use
  Company Number: US-BOEHRINGER INGELHEIM PHARMACEUTICALS, INC.-2007-BP-21973BP

PATIENT
  Age: 67 Year
  Sex: Female

DRUGS (1)
  1. FLOMAX [Suspect]
     Indication: DYSURIA
     Route: 048
     Dates: start: 20070928, end: 20070929

REACTIONS (2)
  - FEELING JITTERY [None]
  - NAUSEA [None]
